FAERS Safety Report 13395601 (Version 1)
Quarter: 2017Q2

REPORT INFORMATION
  Report Type: Spontaneous
  Country: US (occurrence: US)
  Receive Date: 20170401
  Receipt Date: 20170401
  Transmission Date: 20170830
  Serious: Yes (Disabling)
  Sender: FDA-Public Use
  Company Number: None

PATIENT
  Age: 66 Year
  Sex: Female
  Weight: 85.5 kg

DRUGS (10)
  1. DIOVAN [Concomitant]
     Active Substance: VALSARTAN
  2. VITAMIN D [Concomitant]
     Active Substance: CHOLECALCIFEROL
  3. CRANBERRY. [Concomitant]
     Active Substance: CRANBERRY
  4. BAYER 81 [Concomitant]
  5. CENTRUM [Concomitant]
     Active Substance: VITAMINS
  6. GINGGKO [Concomitant]
  7. LEVAQUIN [Suspect]
     Active Substance: LEVOFLOXACIN
     Indication: PREOPERATIVE CARE
     Dosage: ?          QUANTITY:1 TABLET(S);?
     Route: 048
  8. ARTHROTEC [Concomitant]
     Active Substance: DICLOFENAC SODIUM\MISOPROSTOL
  9. CALTRATE [Concomitant]
     Active Substance: CALCIUM CARBONATE
  10. LOESTERIN [Concomitant]

REACTIONS (5)
  - Gait disturbance [None]
  - Loss of personal independence in daily activities [None]
  - Pain [None]
  - Synovitis [None]
  - Tendonitis [None]

NARRATIVE: CASE EVENT DATE: 20170320
